FAERS Safety Report 6587695-1 (Version None)
Quarter: 2010Q1

REPORT INFORMATION
  Report Type: 
  Country: None (occurrence: None)
  Receive Date: 20100218
  Receipt Date: 20100210
  Transmission Date: 20100710
  Serious: Yes (Death, Other)
  Sender: FDA-Public Use
  Company Number: US-BAYER-201015921GPV

PATIENT

DRUGS (1)
  1. FLUDARABINE [Suspect]
     Indication: STEM CELL TRANSPLANT

REACTIONS (3)
  - LEUKOENCEPHALOPATHY [None]
  - REVERSIBLE POSTERIOR LEUKOENCEPHALOPATHY SYNDROME [None]
  - TOXIC ENCEPHALOPATHY [None]
